FAERS Safety Report 6938511-7 (Version None)
Quarter: 2010Q3

REPORT INFORMATION
  Report Type: 
  Country: None (occurrence: None)
  Receive Date: 20100824
  Receipt Date: 20100812
  Transmission Date: 20110219
  Serious: Yes (Other)
  Sender: FDA-Public Use
  Company Number: ES-JNJFOC-20100804759

PATIENT
  Age: 68 Year
  Sex: Male

DRUGS (10)
  1. REMICADE [Suspect]
     Indication: RHEUMATOID ARTHRITIS
     Route: 042
     Dates: start: 20090625, end: 20090625
  2. DOXAZOSIN MESYLATE [Concomitant]
     Indication: HYPERTENSION
     Route: 048
  3. METHOTREXATE [Concomitant]
     Indication: RHEUMATOID ARTHRITIS
     Route: 048
  4. ACFOL [Concomitant]
     Route: 048
  5. METFORMIN HCL [Concomitant]
     Indication: DIABETES MELLITUS
     Route: 048
  6. DIUZINE [Concomitant]
     Route: 048
  7. EMCONCOR [Concomitant]
     Indication: HYPERTENSION
     Route: 048
  8. FERO-GRADUMET [Concomitant]
     Indication: ANAEMIA
     Route: 048
  9. LEXATIN [Concomitant]
     Indication: INSOMNIA
     Route: 048
  10. ZARATOR [Concomitant]
     Indication: DYSLIPIDAEMIA
     Route: 048

REACTIONS (4)
  - ERYTHEMA [None]
  - INFUSION RELATED REACTION [None]
  - OXYGEN SATURATION DECREASED [None]
  - RESPIRATORY DISTRESS [None]
